FAERS Safety Report 7623552-7 (Version None)
Quarter: 2011Q3

REPORT INFORMATION
  Report Type: 
  Country: None (occurrence: None)
  Receive Date: 20110720
  Receipt Date: 20110707
  Transmission Date: 20111222
  Serious: Yes (Other)
  Sender: FDA-Public Use
  Company Number: JP-UCBSA-036904

PATIENT
  Age: 3 Year
  Sex: Female

DRUGS (2)
  1. KEPPRA [Suspect]
     Indication: EPILEPSY
     Dosage: 25MG IN MORNING AND 100MG IN EVENING
     Route: 048
     Dates: start: 20110501
  2. DEPAKENE [Concomitant]
     Dosage: UNKNOWN DOSE

REACTIONS (1)
  - MONOPLEGIA [None]
